FAERS Safety Report 5824189-2 (Version None)
Quarter: 2008Q3

REPORT INFORMATION
  Report Type: 
  Country: None (occurrence: None)
  Receive Date: 20080718
  Receipt Date: 20080606
  Transmission Date: 20090109
  Serious: Yes (Other)
  Sender: FDA-Public Use
  Company Number: US-WYE-H04414308

PATIENT
  Age: 31 Year
  Sex: Female
  Weight: 57.66 kg

DRUGS (2)
  1. ADVIL PM [Suspect]
     Indication: INSOMNIA
     Dosage: 1 CAPLET 1 TIME, ORAL
     Route: 048
     Dates: start: 20080530, end: 20080530
  2. TOPAMAX [Concomitant]

REACTIONS (1)
  - FEELING ABNORMAL [None]
